FAERS Safety Report 17429679 (Version 1)
Quarter: 2020Q1

REPORT INFORMATION
  Report Type: Spontaneous
  Country: US (occurrence: US)
  Receive Date: 20200203
  Receipt Date: 20200203
  Transmission Date: 20200409
  Serious: Yes (Death, Disabling)
  Sender: FDA-Public Use
  Company Number: None

PATIENT
  Age: 80 Year
  Sex: Female
  Weight: 102.06 kg

DRUGS (1)
  1. LETROZOLE. [Suspect]
     Active Substance: LETROZOLE
     Indication: PROPHYLAXIS
     Dosage: ?          QUANTITY:1 PILL ONCE A DAY;OTHER FREQUENCY:1 TABLET EVERY DAY;?
     Route: 048
     Dates: start: 20181006, end: 20181221

REACTIONS (2)
  - Muscle spasms [None]
  - Tendon rupture [None]

NARRATIVE: CASE EVENT DATE: 20181202
